FAERS Safety Report 12789664 (Version 1)
Quarter: 2016Q3

REPORT INFORMATION
  Report Type: Spontaneous
  Country: US (occurrence: US)
  Receive Date: 20160928
  Receipt Date: 20160928
  Transmission Date: 20161109
  Serious: Yes (Hospitalization, Other)
  Sender: FDA-Public Use
  Company Number: US-ABBVIE-16K-163-1733527-00

PATIENT

DRUGS (4)
  1. LEFUMIDE [Concomitant]
     Indication: PRODUCT USED FOR UNKNOWN INDICATION
     Dosage: LARGE DOSES
  2. PREDNISOLONE. [Concomitant]
     Active Substance: PREDNISOLONE
     Indication: PRODUCT USED FOR UNKNOWN INDICATION
     Dosage: LARGE DOSES
  3. HUMIRA [Suspect]
     Active Substance: ADALIMUMAB
     Indication: RHEUMATOID ARTHRITIS
     Route: 058
  4. ENBREL [Suspect]
     Active Substance: ETANERCEPT
     Indication: RHEUMATOID ARTHRITIS
     Route: 065
     Dates: start: 2012

REACTIONS (7)
  - Gait disturbance [Unknown]
  - Nodule [Not Recovered/Not Resolved]
  - Pain in extremity [Unknown]
  - Drug effect decreased [Unknown]
  - Rheumatoid arthritis [Unknown]
  - Cardiomegaly [Unknown]
  - Aortic aneurysm [Unknown]
